FAERS Safety Report 9904836 (Version 1)
Quarter: 2013Q2

REPORT INFORMATION
  Report Type: Spontaneous
  Country: US (occurrence: None)
  Receive Date: 20130305
  Receipt Date: 20130305
  Transmission Date: 20140414
  Serious: Yes (Hospitalization, Other)
  Sender: FDA-Public Use
  Company Number: 163-21880-12030759

PATIENT
  Age: 84 Year
  Sex: Male

DRUGS (6)
  1. REVLIMID (LENALIDOMIDE) (25 MILLIGRAM, CAPSULES) [Suspect]
     Indication: PLASMA CELL MYELOMA
     Dosage: 25 MG, DAILY X 28 DAYS, PO
     Route: 048
     Dates: start: 20111108
  2. PERCOSET (TABLETS) [Concomitant]
  3. CEFEPIME (CEFEPIME) (UNKNOWN) [Concomitant]
  4. VANCOMYCIN (VANCOMYCIN) (UNKNOWN) [Concomitant]
  5. FLUIDS (UNKNOWN) [Concomitant]
  6. NEUPOGEN (FILGRASTIM) (UNKNOWN) [Concomitant]

REACTIONS (2)
  - Neutropenic infection [None]
  - Platelet count decreased [None]
